FAERS Safety Report 22287858 (Version 1)
Quarter: 2023Q2

REPORT INFORMATION
  Report Type: Report from Study
  Country: DK (occurrence: DK)
  Receive Date: 20230505
  Receipt Date: 20230505
  Transmission Date: 20230722
  Serious: Yes (Other)
  Sender: FDA-Public Use
  Company Number: DK-EMA-20170315-vsevhpdd-090759348

PATIENT
  Age: 73 Year
  Sex: Female

DRUGS (2)
  1. ESOMEPRAZOLE [Suspect]
     Active Substance: ESOMEPRAZOLE
     Indication: Product used for unknown indication
  2. LANSOPRAZOLE [Suspect]
     Active Substance: LANSOPRAZOLE
     Indication: Product used for unknown indication
     Dosage: UNK

REACTIONS (4)
  - Subacute cutaneous lupus erythematosus [Not Recovered/Not Resolved]
  - Skin lesion [Unknown]
  - Cross sensitivity reaction [Unknown]
  - Rash [Unknown]
